FAERS Safety Report 7994600-X (Version None)
Quarter: 2011Q4

REPORT INFORMATION
  Report Type: 
  Country: None (occurrence: None)
  Receive Date: 20111217
  Receipt Date: 20111217
  Transmission Date: 20120403
  Serious: No
  Sender: FDA-Public Use
  Company Number: None

PATIENT

DRUGS (2)
  1. HYDRALAZINE HCL 25MG TAB [Suspect]
  2. HYDROXYZINE [Suspect]

REACTIONS (4)
  - DIZZINESS [None]
  - MEDICATION ERROR [None]
  - DRUG DISPENSING ERROR [None]
  - WRONG DRUG ADMINISTERED [None]
